FAERS Safety Report 8820169 (Version 2)
Quarter: 2012Q4

REPORT INFORMATION
  Report Type: 
  Country: US (occurrence: US)
  Receive Date: 20121001
  Receipt Date: 20121022
  Transmission Date: 20130627
  Serious: Yes (Other)
  Sender: FDA-Public Use
  Company Number: US-PFIZER INC-2012239532

PATIENT
  Age: 67 Year
  Sex: Female
  Weight: 81.18 kg

DRUGS (8)
  1. REVATIO [Suspect]
     Indication: CARDIAC DISORDER
     Dosage: 20 mg, 3x/day
     Route: 048
     Dates: start: 2012
  2. REVATIO [Suspect]
     Dosage: 20 mg, 2x/day
     Dates: start: 2012
  3. LISINOPRIL [Concomitant]
     Dosage: 20 mg, daily
  4. SYNTHROID [Concomitant]
     Dosage: 50 ug, daily
  5. AMLODIPINE [Concomitant]
     Dosage: 2.5 mg, daily
  6. LIVALO [Concomitant]
     Dosage: 4 mg, daily
  7. SPIRONOLACTONE [Concomitant]
     Dosage: 50 mg, daily
  8. ACETYLSALICYLIC ACID [Concomitant]
     Dosage: 81 mg, daily

REACTIONS (10)
  - Dyspnoea [Not Recovered/Not Resolved]
  - Abscess [Not Recovered/Not Resolved]
  - Confusional state [Not Recovered/Not Resolved]
  - Depression [Not Recovered/Not Resolved]
  - Dyspepsia [Not Recovered/Not Resolved]
  - Insomnia [Not Recovered/Not Resolved]
  - Diarrhoea [Not Recovered/Not Resolved]
  - Epistaxis [Not Recovered/Not Resolved]
  - Myalgia [Not Recovered/Not Resolved]
  - Rhinorrhoea [Not Recovered/Not Resolved]
